FAERS Safety Report 25246944 (Version 1)
Quarter: 2025Q2

REPORT INFORMATION
  Report Type: Spontaneous
  Country: NO (occurrence: NO)
  Receive Date: 20250428
  Receipt Date: 20250428
  Transmission Date: 20250716
  Serious: Yes (Hospitalization)
  Sender: ORGANON
  Company Number: None

PATIENT
  Age: 53 Year
  Sex: Male
  Weight: 81 kg

DRUGS (1)
  1. MOMETASONE FUROATE [Suspect]
     Active Substance: MOMETASONE FUROATE
     Indication: Nasal polyps
     Dosage: 1 TIMES DAILY IN EACH NOSTRIL.
     Route: 045
     Dates: start: 2000, end: 202412

REACTIONS (2)
  - Lung disorder [Recovered/Resolved]
  - Oxygen consumption decreased [Recovered/Resolved]

NARRATIVE: CASE EVENT DATE: 20240101
